FAERS Safety Report 8010572-6 (Version None)
Quarter: 2011Q4

REPORT INFORMATION
  Report Type: 
  Country: None (occurrence: None)
  Receive Date: 20111228
  Receipt Date: 20111213
  Transmission Date: 20120403
  Serious: Yes (Hospitalization, Other)
  Sender: FDA-Public Use
  Company Number: PHHY2011AU109022

PATIENT
  Sex: Male
  Weight: 122 kg

DRUGS (2)
  1. CLOZARIL [Suspect]
     Dosage: 500 MG
     Dates: start: 20040427, end: 20111213
  2. CIPROFLOXACIN [Concomitant]

REACTIONS (14)
  - POLLAKIURIA [None]
  - PARANOIA [None]
  - OCULAR HYPERAEMIA [None]
  - HAEMORRHAGE [None]
  - SCAB [None]
  - FOOD POISONING [None]
  - EOSINOPHIL COUNT DECREASED [None]
  - SKIN EXFOLIATION [None]
  - ANTIPSYCHOTIC DRUG LEVEL ABOVE THERAPEUTIC [None]
  - INSOMNIA [None]
  - BLOOD PRESSURE SYSTOLIC INCREASED [None]
  - CEREBRAL PALSY [None]
  - DIARRHOEA [None]
  - WEIGHT INCREASED [None]
